FAERS Safety Report 4929792-X (Version None)
Quarter: 2006Q1

REPORT INFORMATION
  Report Type: 
  Country: None (occurrence: None)
  Receive Date: 20060301
  Receipt Date: 20050930
  Transmission Date: 20060701
  Serious: Yes (Hospitalization, Other)
  Sender: FDA-Public Use
  Company Number: US-MERCK-0510USA01324

PATIENT
  Age: 67 Year
  Sex: Male

DRUGS (3)
  1. VIOXX [Suspect]
     Route: 048
     Dates: start: 19990501, end: 20040930
  2. VIOXX [Suspect]
     Route: 048
     Dates: start: 20040112
  3. VIOXX [Suspect]
     Route: 048
     Dates: start: 20030603

REACTIONS (28)
  - ABDOMINAL PAIN [None]
  - ANXIETY [None]
  - ASTHENIA [None]
  - CARDIAC DISORDER [None]
  - CEREBROVASCULAR ACCIDENT [None]
  - CHRONIC SINUSITIS [None]
  - CONFUSIONAL STATE [None]
  - CORONARY ARTERY DISEASE [None]
  - DEPRESSION [None]
  - DIABETES MELLITUS [None]
  - DIABETES MELLITUS NON-INSULIN-DEPENDENT [None]
  - DIABETIC GASTROPARESIS [None]
  - DIARRHOEA [None]
  - DIZZINESS [None]
  - DYSPNOEA [None]
  - GASTROENTERITIS [None]
  - HYPERAMYLASAEMIA [None]
  - HYPERCHOLESTEROLAEMIA [None]
  - HYPERTENSION [None]
  - INSOMNIA [None]
  - ISCHAEMIC CEREBRAL INFARCTION [None]
  - LETHARGY [None]
  - MYOCARDIAL INFARCTION [None]
  - NAUSEA [None]
  - ONYCHOMYCOSIS [None]
  - PANCREATITIS [None]
  - TRANSIENT ISCHAEMIC ATTACK [None]
  - WEIGHT INCREASED [None]
